FAERS Safety Report 5814978-2 (Version None)
Quarter: 2008Q3

REPORT INFORMATION
  Report Type: 
  Country: None (occurrence: None)
  Receive Date: 20080718
  Receipt Date: 20080715
  Transmission Date: 20090109
  Serious: Yes (Death, Hospitalization, Other)
  Sender: FDA-Public Use
  Company Number: PHEH2007US14766

PATIENT
  Sex: Female
  Weight: 42 kg

DRUGS (14)
  1. EXJADE [Suspect]
     Indication: MYELODYSPLASTIC SYNDROME
     Dosage: 1000 MG, QD
     Route: 048
     Dates: start: 20070102
  2. LEVOXYL [Concomitant]
     Dosage: 100 UG, QD
     Route: 048
  3. POTASSIUM CHLORIDE [Concomitant]
  4. MAGNESIUM CHLORIDE [Concomitant]
  5. VITAMIN B COMPLEX CAP [Concomitant]
  6. RED BLOOD CELLS, LEUCOCYTE DEPLETED [Concomitant]
     Dosage: UNK, EVERY 3 TO 4 WEEKS
  7. INSULIN [Concomitant]
     Dosage: SLIDING SCALE
  8. LOVENOX [Concomitant]
     Dosage: 40 MG, QD
     Route: 058
  9. PERCOCET [Concomitant]
  10. HYDROCHLOROTHIAZIDE [Concomitant]
     Dosage: 12.5 MG, QD
     Route: 048
  11. FENTANYL [Concomitant]
  12. NABUMETONE [Concomitant]
     Dosage: 500 MG, BID
     Route: 048
  13. LUBRIDERM [Concomitant]
     Dosage: UNK
     Route: 061
  14. ZOLPIDEM [Concomitant]
     Dosage: 5 MG, QHS PRN
     Route: 048

REACTIONS (32)
  - ACTIVATED PARTIAL THROMBOPLASTIN TIME PROLONGED [None]
  - ANAEMIA [None]
  - ARTHRALGIA [None]
  - ASTHENIA [None]
  - BLOOD GLUCOSE INCREASED [None]
  - BLOOD THYROID STIMULATING HORMONE INCREASED [None]
  - BONE DEBRIDEMENT [None]
  - CACHEXIA [None]
  - DIABETES MELLITUS [None]
  - FATIGUE [None]
  - GAIT DISTURBANCE [None]
  - HAEMATOCRIT DECREASED [None]
  - HAEMOGLOBIN DECREASED [None]
  - HEADACHE [None]
  - INCISIONAL DRAINAGE [None]
  - JOINT EFFUSION [None]
  - JOINT IRRIGATION [None]
  - JOINT SWELLING [None]
  - LEUKOCYTOSIS [None]
  - LIVER FUNCTION TEST ABNORMAL [None]
  - MALNUTRITION [None]
  - MYELODYSPLASTIC SYNDROME [None]
  - PURULENT DISCHARGE [None]
  - RED BLOOD CELL COUNT DECREASED [None]
  - RENAL FAILURE [None]
  - SEPTIC ARTHRITIS STAPHYLOCOCCAL [None]
  - SKIN EXFOLIATION [None]
  - STAPHYLOCOCCAL INFECTION [None]
  - STAPHYLOCOCCAL SEPSIS [None]
  - URINARY TRACT INFECTION STAPHYLOCOCCAL [None]
  - WEIGHT DECREASED [None]
  - WHITE BLOOD CELL COUNT INCREASED [None]
